FAERS Safety Report 19818293 (Version 3)
Quarter: 2021Q4

REPORT INFORMATION
  Report Type: Spontaneous
  Country: CN (occurrence: CN)
  Receive Date: 20210911
  Receipt Date: 20211106
  Transmission Date: 20220303
  Serious: Yes (Other)
  Sender: FDA-Public Use
  Company Number: NVSC2021CN203611

PATIENT
  Age: 46 Year
  Sex: Male

DRUGS (2)
  1. TRAVATAN [Suspect]
     Active Substance: TRAVOPROST
     Indication: Glaucoma
     Dosage: UNK
     Route: 065
     Dates: start: 202104, end: 202105
  2. TRAVATAN [Suspect]
     Active Substance: TRAVOPROST
     Dosage: UNK
     Route: 047
     Dates: start: 202107

REACTIONS (4)
  - Ocular hypertension [Not Recovered/Not Resolved]
  - Product counterfeit [Unknown]
  - Product colour issue [Unknown]
  - Drug ineffective [Not Recovered/Not Resolved]
